FAERS Safety Report 24718323 (Version 1)
Quarter: 2024Q4

REPORT INFORMATION
  Report Type: Spontaneous
  Country: FR (occurrence: FR)
  Receive Date: 20241210
  Receipt Date: 20241210
  Transmission Date: 20250114
  Serious: Yes (Hospitalization)
  Sender: NOVARTIS
  Company Number: None

PATIENT
  Age: 23 Year
  Sex: Male

DRUGS (3)
  1. ARTEMETHER\LUMEFANTRINE [Suspect]
     Active Substance: ARTEMETHER\LUMEFANTRINE
     Indication: Malaria
     Dosage: UNK (8 CP PAR JOUR (1FP))
     Route: 048
     Dates: start: 20241112, end: 20241113
  2. ARTESUNATE [Suspect]
     Active Substance: ARTESUNATE
     Indication: Malaria
     Dosage: UNK (160 MG/ 12H (1FP))
     Route: 042
     Dates: start: 20241113, end: 20241114
  3. ARTENIMOL\PIPERAQUINE PHOSPHATE [Suspect]
     Active Substance: ARTENIMOL\PIPERAQUINE PHOSPHATE
     Indication: Malaria
     Dosage: UNK (3 CP/ JOUR (1FP))
     Route: 048
     Dates: start: 20241113, end: 20241117

REACTIONS (1)
  - Hepatic cytolysis [Recovering/Resolving]

NARRATIVE: CASE EVENT DATE: 20241114
